FAERS Safety Report 20527857 (Version 1)
Quarter: 2022Q1

REPORT INFORMATION
  Report Type: Spontaneous
  Country: PL (occurrence: PL)
  Receive Date: 20220228
  Receipt Date: 20220228
  Transmission Date: 20220423
  Serious: Yes (Hospitalization, Other)
  Sender: FDA-Public Use
  Company Number: PL-AMNEAL PHARMACEUTICALS-2022-AMRX-00437

PATIENT
  Age: 34 Year
  Sex: Male

DRUGS (2)
  1. TESTOSTERONE [Suspect]
     Active Substance: TESTOSTERONE
     Indication: Performance enhancing product use
     Dosage: UNK
     Route: 065
  2. STANOZOLOL [Suspect]
     Active Substance: STANOZOLOL
     Indication: Performance enhancing product use
     Route: 065

REACTIONS (3)
  - Acute kidney injury [Recovered/Resolved]
  - Renal infarct [Recovered/Resolved]
  - Renal artery thrombosis [Recovered/Resolved]
